FAERS Safety Report 20498973 (Version 1)
Quarter: 2022Q1

REPORT INFORMATION
  Report Type: Spontaneous
  Country: PL (occurrence: PL)
  Receive Date: 20220222
  Receipt Date: 20220222
  Transmission Date: 20220423
  Serious: Yes (Other)
  Sender: FDA-Public Use
  Company Number: PL-AMGEN-POLSP2022029991

PATIENT

DRUGS (1)
  1. EVOLOCUMAB [Suspect]
     Active Substance: EVOLOCUMAB
     Indication: Type IIa hyperlipidaemia
     Route: 065

REACTIONS (14)
  - Erectile dysfunction [Unknown]
  - Blood pressure fluctuation [Unknown]
  - Adverse drug reaction [Unknown]
  - Musculoskeletal disorder [Unknown]
  - Gastrointestinal disorder [Unknown]
  - Hot flush [Unknown]
  - Fatigue [Unknown]
  - Therapeutic product effect incomplete [Unknown]
  - Influenza like illness [Unknown]
  - Myalgia [Unknown]
  - Injection site reaction [Unknown]
  - Nasopharyngitis [Unknown]
  - Drug hypersensitivity [Unknown]
  - Treatment noncompliance [Unknown]
